FAERS Safety Report 23786597 (Version 1)
Quarter: 2024Q2

REPORT INFORMATION
  Report Type: Spontaneous
  Country: CN (occurrence: CN)
  Receive Date: 20240426
  Receipt Date: 20240426
  Transmission Date: 20240716
  Serious: Yes (Hospitalization)
  Sender: FDA-Public Use
  Company Number: CN-BEIGENE-BGN-2024-006085

PATIENT

DRUGS (3)
  1. TISLELIZUMAB [Suspect]
     Active Substance: TISLELIZUMAB
     Indication: Lung neoplasm malignant
     Dosage: 200 MILLIGRAM
     Route: 041
     Dates: start: 20240409
  2. CISPLATIN [Suspect]
     Active Substance: CISPLATIN
     Indication: Lung neoplasm malignant
     Dosage: 50 MILLIGRAM, D1, D2
     Route: 041
     Dates: start: 20240410
  3. GEMCITABINE HYDROCHLORIDE [Suspect]
     Active Substance: GEMCITABINE HYDROCHLORIDE
     Indication: Lung neoplasm malignant
     Dosage: 1.4 GRAM, D3, D10
     Route: 041
     Dates: start: 20240410

REACTIONS (5)
  - Hepatic function abnormal [Unknown]
  - Pyrexia [Unknown]
  - Cough [Unknown]
  - Breath sounds abnormal [Unknown]
  - Rales [Unknown]

NARRATIVE: CASE EVENT DATE: 20240417
